FAERS Safety Report 21653052 (Version 1)
Quarter: 2022Q4

REPORT INFORMATION
  Report Type: Spontaneous
  Country: US (occurrence: None)
  Receive Date: 20221125
  Receipt Date: 20221125
  Transmission Date: 20230113
  Serious: Yes (Death)
  Sender: FDA-Public Use
  Company Number: None

PATIENT
  Age: 90 Year
  Sex: Male
  Weight: 63.5 kg

DRUGS (18)
  1. LENALIDOMIDE [Suspect]
     Active Substance: LENALIDOMIDE
     Indication: Plasma cell myeloma
  2. CALCIUM 500 /D [Concomitant]
  3. CRANBERRY [Concomitant]
     Active Substance: CRANBERRY
  4. DECADRON [Concomitant]
     Active Substance: DEXAMETHASONE
  5. DIGOXIN [Concomitant]
     Active Substance: DIGOXIN
  6. DORZOLAMIDE [Concomitant]
     Active Substance: DORZOLAMIDE
  7. ELIQUIS [Concomitant]
     Active Substance: APIXABAN
  8. FERROUS SULFATE [Concomitant]
     Active Substance: FERROUS SULFATE
  9. FINASTERIDE [Concomitant]
     Active Substance: FINASTERIDE
  10. FISH OIL [Concomitant]
     Active Substance: FISH OIL
  11. FUROSEMIDE [Concomitant]
     Active Substance: FUROSEMIDE
  12. GLUCOSAMINE [Concomitant]
     Active Substance: GLUCOSAMINE
  13. METOPROLOL [Concomitant]
     Active Substance: METOPROLOL
  14. VITAMINS [Concomitant]
     Active Substance: VITAMINS
  15. SIMVASTATIN [Concomitant]
     Active Substance: SIMVASTATIN
  16. TRAMADOL [Concomitant]
     Active Substance: TRAMADOL
  17. TRAVATAN Z [Concomitant]
     Active Substance: TRAVOPROST
  18. XALATAN [Concomitant]
     Active Substance: LATANOPROST

REACTIONS (1)
  - Death [None]

NARRATIVE: CASE EVENT DATE: 20221124
